FAERS Safety Report 4745690-9 (Version None)
Quarter: 2005Q3

REPORT INFORMATION
  Report Type: 
  Country: None (occurrence: None)
  Receive Date: 20050811
  Receipt Date: 20050802
  Transmission Date: 20060218
  Serious: Yes (Hospitalization)
  Sender: FDA-Public Use
  Company Number: 2005095595

PATIENT
  Age: 70 Year
  Sex: Male
  Weight: 68 kg

DRUGS (6)
  1. CLINDAMYCIN PHOSPHATE [Suspect]
     Indication: PNEUMONIA ASPIRATION
     Dosage: 1200 MG (600 MG, BID), INTRAVENOUS
     Route: 042
     Dates: start: 20050614, end: 20050620
  2. CARBENIN (BETAMIPRON, PANIPENEM) [Concomitant]
  3. FAMOTIDINE [Concomitant]
  4. LANSOPRAZOLE [Concomitant]
  5. FOY (GABEXATE MESILATE) [Concomitant]
  6. CIPROFLOXACIN HYDROCHLORIDE [Concomitant]

REACTIONS (5)
  - ALANINE AMINOTRANSFERASE INCREASED [None]
  - CONDITION AGGRAVATED [None]
  - HEPATIC ENZYME INCREASED [None]
  - HEPATIC FUNCTION ABNORMAL [None]
  - INTERSTITIAL LUNG DISEASE [None]
